FAERS Safety Report 4614130-2 (Version None)
Quarter: 2005Q1

REPORT INFORMATION
  Report Type: 
  Country: None (occurrence: None)
  Receive Date: 20050315
  Receipt Date: 20050225
  Transmission Date: 20050727
  Serious: Yes (Other)
  Sender: FDA-Public Use
  Company Number: B0373048A

PATIENT
  Sex: 0

DRUGS (1)
  1. ZOFRAN [Suspect]
     Dosage: .1 MG/KG/ SINGLE DOSE/INTRAVENOUS
     Route: 042

REACTIONS (1)
  - AGGRESSION [None]
